FAERS Safety Report 9593826 (Version 2)
Quarter: 2013Q4

REPORT INFORMATION
  Report Type: Spontaneous
  Country: BE (occurrence: BE)
  Receive Date: 20131004
  Receipt Date: 20131004
  Transmission Date: 20140711
  Serious: Yes (Hospitalization)
  Sender: FDA-Public Use
  Company Number: BE-JNJFOC-20130908125

PATIENT
  Age: 50 Year
  Sex: Female
  Weight: 103 kg

DRUGS (6)
  1. REMICADE [Suspect]
     Indication: CROHN^S DISEASE
     Route: 042
     Dates: end: 201308
  2. REMICADE [Suspect]
     Indication: CROHN^S DISEASE
     Dosage: 5 MG/KG
     Route: 042
     Dates: start: 2005, end: 20130718
  3. ALDACTONE [Concomitant]
     Indication: HYPERTENSION
     Route: 065
  4. KINZALMONO [Concomitant]
     Route: 065
  5. KREDEX [Concomitant]
     Indication: HYPERTENSION
     Route: 065
  6. PANTOMED [Concomitant]
     Route: 065

REACTIONS (1)
  - Purpura [Not Recovered/Not Resolved]
